FAERS Safety Report 6385283-3 (Version None)
Quarter: 2009Q4

REPORT INFORMATION
  Report Type: 
  Country: None (occurrence: None)
  Receive Date: 20091002
  Receipt Date: 20080808
  Transmission Date: 20100525
  Serious: Yes (Hospitalization)
  Sender: FDA-Public Use
  Company Number: US-ASTRAZENECA-2008UW16305

PATIENT
  Age: 60 Year
  Sex: Female
  Weight: 59 kg

DRUGS (4)
  1. ARIMIDEX [Suspect]
     Indication: BREAST CANCER
     Route: 048
     Dates: start: 20040101
  2. VAGIFEM [Concomitant]
  3. FEMARA [Concomitant]
     Dates: start: 20040101
  4. AROMASIN [Concomitant]
     Dates: start: 20040101

REACTIONS (4)
  - ARTHRALGIA [None]
  - ATROPHIC VULVOVAGINITIS [None]
  - CARPAL TUNNEL SYNDROME [None]
  - NECK PAIN [None]
